FAERS Safety Report 4919910-1 (Version None)
Quarter: 2006Q1

REPORT INFORMATION
  Report Type: 
  Country: None (occurrence: None)
  Receive Date: 20060217
  Receipt Date: 20060207
  Transmission Date: 20060701
  Serious: Yes (Other)
  Sender: FDA-Public Use
  Company Number: 2005163456

PATIENT
  Age: 42 Year
  Sex: Male

DRUGS (4)
  1. LYRICA [Suspect]
     Indication: CONVULSION
     Dosage: 75 MG
     Dates: start: 20051013, end: 20051104
  2. NEURONTIN [Concomitant]
  3. CARBAMAZEPINE [Concomitant]
  4. KLONOPIN [Concomitant]

REACTIONS (4)
  - COMPLEX PARTIAL SEIZURES [None]
  - CONDITION AGGRAVATED [None]
  - FALL [None]
  - GRAND MAL CONVULSION [None]
